FAERS Safety Report 7908949-X (Version None)
Quarter: 2011Q4

REPORT INFORMATION
  Report Type: 
  Country: None (occurrence: None)
  Receive Date: 20111110
  Receipt Date: 20111110
  Transmission Date: 20120403
  Serious: Yes (Hospitalization)
  Sender: FDA-Public Use
  Company Number: None

PATIENT
  Sex: Male
  Weight: 68.7 kg

DRUGS (6)
  1. PREDNISONE [Concomitant]
  2. NEUPOGEN [Concomitant]
  3. CISPLATIN [Suspect]
     Dosage: 374 MG
     Dates: end: 20081216
  4. XOPENEX HFA [Concomitant]
  5. SOLU-MEDROL [Concomitant]
  6. DOXYCYCLINE [Concomitant]

REACTIONS (1)
  - DYSPNOEA [None]
